FAERS Safety Report 4895131-6 (Version None)
Quarter: 2006Q1

REPORT INFORMATION
  Report Type: 
  Country: None (occurrence: None)
  Receive Date: 20060125
  Receipt Date: 20060102
  Transmission Date: 20060701
  Serious: Yes (Death, Hospitalization)
  Sender: FDA-Public Use
  Company Number: ENTC2006-0002

PATIENT
  Age: 64 Year
  Sex: Female

DRUGS (11)
  1. STALEVO 100 [Suspect]
     Indication: PARKINSON'S DISEASE
     Dosage: 50/12,5/200 MG X 5, ORAL
     Route: 048
     Dates: start: 20050701
  2. ZYPREXA [Suspect]
     Indication: PSYCHOTIC DISORDER
     Dosage: 5 MG (5 MG, 1 IN 1 D), ORAL
     Route: 048
     Dates: start: 20050701
  3. FURADANTIN [Concomitant]
  4. MAREVAN [Concomitant]
  5. MADOPAR [Concomitant]
  6. SINEMET DEPOT [Concomitant]
  7. REQUIP [Concomitant]
  8. PROGYNOVA [Concomitant]
  9. EFEXOR [Concomitant]
  10. FLORINEF [Concomitant]
  11. LIPITOR [Concomitant]

REACTIONS (1)
  - SUDDEN DEATH [None]
